FAERS Safety Report 7865958-7 (Version None)
Quarter: 2011Q4

REPORT INFORMATION
  Report Type: 
  Country: None (occurrence: None)
  Receive Date: 20111028
  Receipt Date: 20110328
  Transmission Date: 20120403
  Serious: No
  Sender: FDA-Public Use
  Company Number: US-GLAXOSMITHKLINE-A0920294A

PATIENT
  Age: 74 Year
  Sex: Male

DRUGS (12)
  1. ADVAIR DISKUS 100/50 [Suspect]
     Indication: DYSPNOEA
     Dosage: 1PUFF TWICE PER DAY
     Route: 055
     Dates: start: 20110325, end: 20110326
  2. COZAAR [Concomitant]
  3. TOPROL-XL [Concomitant]
  4. ZOCOR [Concomitant]
  5. ASPIRIN [Concomitant]
  6. ZANTAC [Concomitant]
  7. VASOPRIL [Concomitant]
  8. FUROSEMIDE [Concomitant]
  9. UROXATRAL [Concomitant]
  10. TEMAZEPAM [Concomitant]
  11. TIKOSYN [Concomitant]
  12. UNKNOWN MEDICATION [Concomitant]

REACTIONS (1)
  - ARRHYTHMIA [None]
